FAERS Safety Report 12762997 (Version 5)
Quarter: 2017Q2

REPORT INFORMATION
  Report Type: Spontaneous
  Country: ES (occurrence: ES)
  Receive Date: 20160920
  Receipt Date: 20170412
  Transmission Date: 20170830
  Serious: Yes (Other)
  Sender: FDA-Public Use
  Company Number: ES-BAYER-2016-179982

PATIENT
  Age: 39 Year
  Sex: Female

DRUGS (3)
  1. MIRENA [Suspect]
     Active Substance: LEVONORGESTREL
     Indication: MENORRHAGIA
     Dosage: 20 MCG/24HR, CONT
     Route: 015
  2. INSULIN [Concomitant]
     Active Substance: INSULIN NOS
  3. SINEMET [Concomitant]
     Active Substance: CARBIDOPA\LEVODOPA

REACTIONS (12)
  - Genital haemorrhage [Not Recovered/Not Resolved]
  - Perforation [Unknown]
  - Headache [Not Recovered/Not Resolved]
  - Back pain [Not Recovered/Not Resolved]
  - Adverse event [Unknown]
  - Monoplegia [Recovering/Resolving]
  - Menorrhagia [Not Recovered/Not Resolved]
  - Abdominal distension [Not Recovered/Not Resolved]
  - Fatigue [Not Recovered/Not Resolved]
  - Nervous system disorder [Unknown]
  - Muscle fatigue [Not Recovered/Not Resolved]
  - Dyspareunia [Not Recovered/Not Resolved]
